FAERS Safety Report 5405209-6 (Version None)
Quarter: 2007Q3

REPORT INFORMATION
  Report Type: 
  Country: None (occurrence: None)
  Receive Date: 20070803
  Receipt Date: 20070726
  Transmission Date: 20080115
  Serious: Yes (Other)
  Sender: FDA-Public Use
  Company Number: US-ELI_LILLY_AND_COMPANY-US200707006385

PATIENT
  Age: 37 Year
  Sex: Male

DRUGS (1)
  1. HUMATROPE [Suspect]

REACTIONS (1)
  - NEOPLASM MALIGNANT [None]
